FAERS Safety Report 5917152-4 (Version None)
Quarter: 2008Q4

REPORT INFORMATION
  Report Type: 
  Country: None (occurrence: None)
  Receive Date: 20081010
  Receipt Date: 20081010
  Transmission Date: 20090506
  Serious: Yes (Other)
  Sender: FDA-Public Use
  Company Number: None

PATIENT
  Age: 71 Year
  Sex: Male
  Weight: 64.4108 kg

DRUGS (3)
  1. TAXOTERE [Suspect]
     Dosage: 120MG Q3WKS IV 120MG IV Q 3WK
     Route: 042
     Dates: start: 20080911
  2. TAXOTERE [Suspect]
     Dosage: 120MG Q3WKS IV 120MG IV Q 3WK
     Route: 042
     Dates: start: 20081009
  3. TAXOTERE [Suspect]

REACTIONS (3)
  - COUGH [None]
  - DYSPNOEA [None]
  - ERYTHEMA [None]
